FAERS Safety Report 12549555 (Version 7)
Quarter: 2020Q2

REPORT INFORMATION
  Report Type: Spontaneous
  Country: US (occurrence: US)
  Receive Date: 20160712
  Receipt Date: 20200626
  Transmission Date: 20200713
  Serious: Yes (Hospitalization, Other)
  Sender: FDA-Public Use
  Company Number: US-PFIZER INC-2016335757

PATIENT
  Age: 72 Year
  Sex: Female
  Weight: 59 kg

DRUGS (2)
  1. PREMPRO [Suspect]
     Active Substance: ESTROGENS, CONJUGATED\MEDROXYPROGESTERONE ACETATE
     Indication: MENSTRUAL DISORDER
     Dosage: 1 DF, 1X/DAY[0625/2.5, OVAL PINK PILL, TAKES 1 PER DAY BY MOUTH]
     Route: 048
  2. SYNTHROID [Concomitant]
     Active Substance: LEVOTHYROXINE SODIUM
     Indication: THYROID DISORDER
     Dosage: UNK

REACTIONS (16)
  - Depression [Recovered/Resolved]
  - Gait disturbance [Recovered/Resolved]
  - Osteoarthritis [Unknown]
  - Loss of consciousness [Recovered/Resolved]
  - Product use in unapproved therapeutic environment [Unknown]
  - Withdrawal syndrome [Unknown]
  - Nausea [Recovered/Resolved]
  - Humerus fracture [Unknown]
  - Feeling abnormal [Recovered/Resolved]
  - Memory impairment [Not Recovered/Not Resolved]
  - Product use in unapproved indication [Unknown]
  - Malaise [Recovered/Resolved]
  - Therapeutic product effect delayed [Unknown]
  - Bone disorder [Unknown]
  - Musculoskeletal pain [Unknown]
  - Product dose omission [Unknown]

NARRATIVE: CASE EVENT DATE: 2013
